FAERS Safety Report 4771009-3 (Version None)
Quarter: 2005Q3

REPORT INFORMATION
  Report Type: 
  Country: None (occurrence: None)
  Receive Date: 20050914
  Receipt Date: 20050826
  Transmission Date: 20060218
  Serious: Yes (Hospitalization)
  Sender: FDA-Public Use
  Company Number: 2005-0008658

PATIENT
  Age: 38 Year
  Sex: Male

DRUGS (5)
  1. EMTRIVA [Suspect]
     Dosage: 1 DOSAE FORMS, 1 IN 1 D)
     Dates: start: 20050531, end: 20050617
  2. VIREAD [Suspect]
     Indication: HIV INFECTION
     Dosage: 300 MG, 1 IN 1 D, ORAL
     Route: 048
     Dates: start: 20050531, end: 20050617
  3. KALETRA [Suspect]
     Dosage: 4 DOSAGE FORMS, 1 IN 1 D
     Dates: start: 20050531, end: 20050617
  4. TEGRETOL [Suspect]
     Indication: HERPES ZOSTER
     Dosage: 600 MG, 1 IN 1 D
     Dates: start: 20050531, end: 20050617
  5. TEGRETOL [Suspect]
     Indication: PAIN
     Dosage: 600 MG, 1 IN 1 D
     Dates: start: 20050531, end: 20050617

REACTIONS (23)
  - ALANINE AMINOTRANSFERASE INCREASED [None]
  - ALPHA 1 GLOBULIN INCREASED [None]
  - BLOOD ALBUMIN DECREASED [None]
  - BLOOD AMYLASE INCREASED [None]
  - CUTANEOUS VASCULITIS [None]
  - CYTOLYTIC HEPATITIS [None]
  - ENTERITIS [None]
  - GASTROINTESTINAL INFLAMMATION [None]
  - GENERAL PHYSICAL HEALTH DETERIORATION [None]
  - HYPOCALCAEMIA [None]
  - HYPONATRAEMIA [None]
  - ILEUS PARALYTIC [None]
  - LABORATORY TEST ABNORMAL [None]
  - LEUKOPLAKIA ORAL [None]
  - LIPASE INCREASED [None]
  - LYMPHADENOPATHY [None]
  - MUCOUS MEMBRANE DISORDER [None]
  - OESOPHAGEAL DISORDER [None]
  - PHARYNGEAL ERYTHEMA [None]
  - THERAPY NON-RESPONDER [None]
  - THROMBOCYTOPENIA [None]
  - VASCULITIS GASTROINTESTINAL [None]
  - WHITE BLOOD CELL COUNT DECREASED [None]
